FAERS Safety Report 25258792 (Version 1)
Quarter: 2025Q2

REPORT INFORMATION
  Report Type: Spontaneous
  Country: SK (occurrence: SK)
  Receive Date: 20250501
  Receipt Date: 20250501
  Transmission Date: 20250716
  Serious: Yes (Death, Other)
  Sender: AMGEN
  Company Number: SK-ROCHE-10000262360

PATIENT
  Age: 69 Year
  Sex: Male

DRUGS (4)
  1. MVASI [Suspect]
     Active Substance: BEVACIZUMAB-AWWB
     Indication: Transitional cell carcinoma
     Route: 065
     Dates: start: 202003
  2. GEMCITABINE [Suspect]
     Active Substance: GEMCITABINE
     Indication: Transitional cell carcinoma
     Route: 065
     Dates: start: 202003
  3. PEMETREXED [Suspect]
     Active Substance: PEMETREXED
     Indication: Transitional cell carcinoma
     Route: 065
  4. ERLOTINIB [Suspect]
     Active Substance: ERLOTINIB
     Indication: Transitional cell carcinoma
     Route: 048

REACTIONS (6)
  - Pancytopenia [Unknown]
  - Thrombocytopenia [Unknown]
  - Pulmonary embolism [Fatal]
  - Bronchostenosis [Unknown]
  - Disease progression [Unknown]
  - Off label use [Unknown]

NARRATIVE: CASE EVENT DATE: 20200301
